FAERS Safety Report 6987789-2 (Version None)
Quarter: 2010Q3

REPORT INFORMATION
  Report Type: 
  Country: None (occurrence: None)
  Receive Date: 20100916
  Receipt Date: 20100907
  Transmission Date: 20110219
  Serious: Yes (Other)
  Sender: FDA-Public Use
  Company Number: AU-JNJCH-2010020430

PATIENT
  Age: 30 Year
  Sex: Male

DRUGS (1)
  1. ROGAINE [Suspect]
     Indication: ALOPECIA
     Dosage: TEXT:TWICE A DAY
     Route: 061
     Dates: start: 20100901, end: 20100906

REACTIONS (2)
  - DYSPNOEA [None]
  - MIGRAINE [None]
